FAERS Safety Report 14931894 (Version 5)
Quarter: 2022Q2

REPORT INFORMATION
  Report Type: Report from Study
  Country: US (occurrence: US)
  Receive Date: 20180524
  Receipt Date: 20220408
  Transmission Date: 20220720
  Serious: No
  Sender: FDA-Public Use
  Company Number: US-ACADIA PHARMACEUTICALS INC.-ACA-2018-007585

PATIENT
  Age: 83 Year
  Sex: Male

DRUGS (26)
  1. NUPLAZID [Suspect]
     Active Substance: PIMAVANSERIN TARTRATE
     Indication: Parkinson^s disease psychosis
     Dosage: 34 MG, QD
     Route: 048
     Dates: start: 20190212
  2. NUPLAZID [Suspect]
     Active Substance: PIMAVANSERIN TARTRATE
     Indication: Hallucination
     Dosage: 1/2 TABLET, QD
     Route: 048
     Dates: start: 20180111, end: 201801
  3. NUPLAZID [Suspect]
     Active Substance: PIMAVANSERIN TARTRATE
     Indication: Delusion
     Dosage: 1 TABLET EVERY OTHER DAY
     Route: 048
     Dates: start: 201801
  4. NUPLAZID [Suspect]
     Active Substance: PIMAVANSERIN TARTRATE
     Indication: Parkinson^s disease psychosis
     Dosage: 17 MG, QD
     Route: 048
     Dates: start: 20180308
  5. ATORVASTATIN [Concomitant]
     Active Substance: ATORVASTATIN
  6. CARBIDOPA\LEVODOPA [Concomitant]
     Active Substance: CARBIDOPA\LEVODOPA
  7. ENTACAPONE [Concomitant]
     Active Substance: ENTACAPONE
  8. FERROUS SULFATE [Concomitant]
     Active Substance: FERROUS SULFATE
  9. FOLIC ACID [Concomitant]
     Active Substance: FOLIC ACID
  10. GLIMEPIRIDE [Concomitant]
     Active Substance: GLIMEPIRIDE
  11. JANUVIA [Concomitant]
     Active Substance: SITAGLIPTIN PHOSPHATE
  12. METFORMIN [Concomitant]
     Active Substance: METFORMIN HYDROCHLORIDE
  13. HIGH DENSITY POLYETHYLENE [Concomitant]
     Active Substance: HIGH DENSITY POLYETHYLENE
  14. PROPRANOLOL HYDROCHLORIDE [Concomitant]
     Active Substance: PROPRANOLOL HYDROCHLORIDE
  15. ROSUVASTATIN [Concomitant]
     Active Substance: ROSUVASTATIN
  16. TAMSULOSIN [Concomitant]
     Active Substance: TAMSULOSIN
  17. HYDROCHLOROTHIAZIDE\VALSARTAN [Concomitant]
     Active Substance: HYDROCHLOROTHIAZIDE\VALSARTAN
  18. FUROSEMIDE [Concomitant]
     Active Substance: FUROSEMIDE
  19. LOSARTAN POTASSIUM [Concomitant]
     Active Substance: LOSARTAN POTASSIUM
  20. MYRBETRIQ [Concomitant]
     Active Substance: MIRABEGRON
  21. QUETIAPINE [Concomitant]
     Active Substance: QUETIAPINE
  22. CIPROFLOXACIN [Concomitant]
     Active Substance: CIPROFLOXACIN
  23. DONEPEZIL [Concomitant]
     Active Substance: DONEPEZIL
  24. LOSARTAN AND HYDROCHLOROTHIAZIDE [Concomitant]
     Active Substance: HYDROCHLOROTHIAZIDE\LOSARTAN POTASSIUM
  25. TRAZODONE [Concomitant]
     Active Substance: TRAZODONE HYDROCHLORIDE
  26. TRESIBA [Concomitant]
     Active Substance: INSULIN DEGLUDEC

REACTIONS (12)
  - Mobility decreased [Unknown]
  - Mood swings [Unknown]
  - Prescribed underdose [Unknown]
  - Underdose [Unknown]
  - Product prescribing issue [Unknown]
  - Condition aggravated [Unknown]
  - Hallucination [Unknown]
  - Constipation [Not Recovered/Not Resolved]
  - Peripheral swelling [Not Recovered/Not Resolved]
  - Drug ineffective [Not Recovered/Not Resolved]
  - Hallucination [Not Recovered/Not Resolved]
  - Hallucination [Unknown]

NARRATIVE: CASE EVENT DATE: 20180111
